FAERS Safety Report 16940043 (Version 2)
Quarter: 2019Q4

REPORT INFORMATION
  Report Type: Report from Study
  Country: GB (occurrence: GB)
  Receive Date: 20191021
  Receipt Date: 20191113
  Transmission Date: 20200122
  Serious: Yes (Hospitalization)
  Sender: FDA-Public Use
  Company Number: GB-ROCHE-2438166

PATIENT
  Age: 68 Year
  Sex: Male

DRUGS (3)
  1. BEVACIZUMAB. [Suspect]
     Active Substance: BEVACIZUMAB
     Indication: MESOTHELIOMA
     Dosage: 15 MG/KG INTRAVENOUSLY ON DAY 1 EVERY 3 WEEKS
     Route: 042
     Dates: start: 20190902, end: 20191016
  2. CARBOPLATIN. [Suspect]
     Active Substance: CARBOPLATIN
     Indication: MESOTHELIOMA
     Dosage: AUC 5 PLUS
     Route: 042
     Dates: start: 20190902, end: 20191016
  3. PEMETREXED. [Suspect]
     Active Substance: PEMETREXED
     Indication: MESOTHELIOMA
     Dosage: 500 MG/M^2 INTRAVENOUSLY ON DAY 1 EVERY 3 WEEKS.
     Route: 042
     Dates: start: 20190902, end: 20191016

REACTIONS (1)
  - Confusional state [Unknown]

NARRATIVE: CASE EVENT DATE: 20191031
